FAERS Safety Report 7674795-8 (Version None)
Quarter: 2011Q3

REPORT INFORMATION
  Report Type: 
  Country: None (occurrence: None)
  Receive Date: 20110810
  Receipt Date: 20110727
  Transmission Date: 20111222
  Serious: Yes (Hospitalization)
  Sender: FDA-Public Use
  Company Number: GB-GLAXOSMITHKLINE-B0737939A

PATIENT
  Sex: Male

DRUGS (11)
  1. ACETAMINOPHEN [Concomitant]
     Dates: start: 20090430, end: 20090504
  2. SODIUM CHLORIDE [Concomitant]
     Dates: start: 20090429, end: 20090501
  3. PEPPERMINT [Concomitant]
     Dates: start: 20090501, end: 20090501
  4. TRAMADOL HCL [Concomitant]
     Dates: start: 20090430, end: 20090430
  5. UNSPECIFIED MEDICATION [Concomitant]
     Dates: start: 20090501, end: 20090501
  6. PIPERACILLIN AND TAZOBACTAM [Concomitant]
     Dates: start: 20090430, end: 20090504
  7. MOVIPREP [Concomitant]
     Dates: start: 20090501, end: 20090503
  8. FRAGMIN [Concomitant]
     Dates: start: 20090430, end: 20090430
  9. MORPHINE [Concomitant]
     Dates: start: 20090430, end: 20090430
  10. CHLORAMBUCIL [Suspect]
     Indication: CHRONIC LYMPHOCYTIC LEUKAEMIA
     Dosage: 20MG CYCLIC
     Route: 048
     Dates: start: 20081201
  11. MABTHERA [Suspect]
     Indication: CHRONIC LYMPHOCYTIC LEUKAEMIA
     Dosage: 1000MG MONTHLY
     Route: 042
     Dates: start: 20081201

REACTIONS (1)
  - NEUTROPENIC COLITIS [None]
